FAERS Safety Report 17285472 (Version 7)
Quarter: 2020Q1

REPORT INFORMATION
  Report Type: Report from Study
  Country: US (occurrence: US)
  Receive Date: 20200117
  Receipt Date: 20200331
  Transmission Date: 20200409
  Serious: Yes (Hospitalization, Other)
  Sender: FDA-Public Use
  Company Number: US-GILEAD-2020-0445168

PATIENT
  Age: 79 Year
  Sex: Female
  Weight: 53.52 kg

DRUGS (5)
  1. TYVASO [Suspect]
     Active Substance: TREPROSTINIL
     Indication: PULMONARY ARTERIAL HYPERTENSION
     Dosage: 18-54 UG (3-9 BREATHS), QID
     Route: 055
     Dates: start: 20160503
  2. OPSUMIT [Suspect]
     Active Substance: MACITENTAN
     Indication: PRODUCT USED FOR UNKNOWN INDICATION
     Dosage: UNK
     Route: 065
  3. AMBRISENTAN [Suspect]
     Active Substance: AMBRISENTAN
     Indication: PULMONARY HYPERTENSION
     Dosage: 10 MG, QD
     Route: 048
     Dates: start: 20160322
  4. TYVASO [Suspect]
     Active Substance: TREPROSTINIL
     Dosage: 60-120UG (10-20 BREATHS) QID
     Route: 055
  5. TYVASO [Suspect]
     Active Substance: TREPROSTINIL
     Dosage: UNK
     Route: 055

REACTIONS (20)
  - Bronchitis [Not Recovered/Not Resolved]
  - Asthenia [Unknown]
  - Gait disturbance [Not Recovered/Not Resolved]
  - Drug hypersensitivity [Unknown]
  - Weight decreased [Unknown]
  - Visual impairment [Unknown]
  - Loss of consciousness [Unknown]
  - Cardiac failure congestive [Not Recovered/Not Resolved]
  - Mobility decreased [Unknown]
  - Fluid retention [Unknown]
  - Osteoporosis [Not Recovered/Not Resolved]
  - Chest pain [Unknown]
  - Burning sensation [Unknown]
  - Eye operation [Unknown]
  - Chronic obstructive pulmonary disease [Not Recovered/Not Resolved]
  - Malaise [Not Recovered/Not Resolved]
  - Decreased appetite [Unknown]
  - Weight increased [Unknown]
  - Calcinosis [Unknown]
  - Feeling abnormal [Unknown]

NARRATIVE: CASE EVENT DATE: 202001
